FAERS Safety Report 4987264-0 (Version None)
Quarter: 2006Q2

REPORT INFORMATION
  Report Type: 
  Country: None (occurrence: None)
  Receive Date: 20060501
  Receipt Date: 20060127
  Transmission Date: 20061013
  Serious: Yes (Hospitalization, Disabling)
  Sender: FDA-Public Use
  Company Number: US-MERCK-0602USA00050

PATIENT
  Age: 60 Year
  Sex: Male
  Weight: 114 kg

DRUGS (5)
  1. VIOXX [Suspect]
     Indication: PAIN
     Route: 048
     Dates: start: 19990601, end: 20020101
  2. VIOXX [Suspect]
     Route: 048
     Dates: start: 20020604
  3. VIOXX [Suspect]
     Indication: ARTHRITIS
     Route: 048
     Dates: start: 19990601, end: 20020101
  4. VIOXX [Suspect]
     Route: 048
     Dates: start: 20020604
  5. ASPIRIN [Concomitant]
     Route: 048

REACTIONS (20)
  - ACUTE CORONARY SYNDROME [None]
  - ANGINA UNSTABLE [None]
  - BLINDNESS TRANSIENT [None]
  - CAROTID ARTERY STENOSIS [None]
  - CHOLANGITIS [None]
  - CHRONIC FATIGUE SYNDROME [None]
  - CONSTIPATION [None]
  - DEPRESSION [None]
  - DIVERTICULUM [None]
  - DYSPHAGIA [None]
  - DYSPNOEA [None]
  - EAR DISCOMFORT [None]
  - ERECTILE DYSFUNCTION [None]
  - MYOCARDIAL INFARCTION [None]
  - POST-TRAUMATIC STRESS DISORDER [None]
  - PRESCRIBED OVERDOSE [None]
  - RHINITIS ALLERGIC [None]
  - SLEEP DISORDER [None]
  - STENT OCCLUSION [None]
  - URINARY HESITATION [None]
